FAERS Safety Report 8273314 (Version 4)
Quarter: 2013Q3

REPORT INFORMATION
  Report Type: Report from Study
  Country: DE (occurrence: DE)
  Receive Date: 20111202
  Receipt Date: 20130716
  Transmission Date: 20140515
  Serious: Yes (Other)
  Sender: FDA-Public Use
  Company Number: DE-UCBSA-046610

PATIENT
  Sex: Female

DRUGS (7)
  1. CERTOLIZUMAB PEGOL [Suspect]
     Indication: RHEUMATOID ARTHRITIS
     Route: 058
     Dates: end: 2011
  2. IBUPROFEN [Concomitant]
     Indication: RHEUMATOID ARTHRITIS
  3. PREDNISOLONE [Concomitant]
     Indication: RHEUMATOID ARTHRITIS
  4. CALCIUM D3 [Concomitant]
     Indication: PROPHYLAXIS
     Dosage: AS USED: 1000
     Dates: start: 200805
  5. ARAVA [Concomitant]
     Indication: RHEUMATOID ARTHRITIS
     Dates: start: 200805
  6. SIMVASTIN [Concomitant]
     Indication: HYPERLIPIDAEMIA
     Dates: start: 201004
  7. L-THYROXIN [Concomitant]
     Indication: HYPOTHYROIDISM
     Dates: start: 2006

REACTIONS (5)
  - Anaemia [Not Recovered/Not Resolved]
  - Haemorrhoids [Recovered/Resolved]
  - Keratitis [Recovered/Resolved]
  - Hypoaesthesia oral [Recovered/Resolved]
  - Haemangioma [Recovered/Resolved]
